FAERS Safety Report 10086632 (Version 2)
Quarter: 2014Q2

REPORT INFORMATION
  Report Type: Spontaneous
  Country: US (occurrence: US)
  Receive Date: 20140418
  Receipt Date: 20140609
  Transmission Date: 20141212
  Serious: Yes (Hospitalization, Other)
  Sender: FDA-Public Use
  Company Number: US-PFIZER INC-2014109322

PATIENT
  Age: 41 Year
  Sex: Female
  Weight: 80 kg

DRUGS (11)
  1. XELJANZ [Suspect]
     Indication: RHEUMATOID ARTHRITIS
     Dosage: 5 MG, 2X/DAY
     Route: 048
     Dates: start: 20131125, end: 20140130
  2. XELJANZ [Suspect]
     Dosage: 5 MG, 2X/DAY
     Route: 048
     Dates: start: 20140303, end: 20140414
  3. METHOTREXATE SODIUM [Concomitant]
     Dosage: 2.5 MG, 6 PILLS ORALLY ONCE A WEEK
     Route: 048
  4. PREDNISONE [Concomitant]
     Dosage: 5 MG, AS NEEDED (1-2 PILLS DAILY)
  5. PREDNISONE [Concomitant]
     Dosage: 1 MG, 4 PILLS Q AM WITH FOOD
  6. NORCO [Concomitant]
     Dosage: UNK
  7. NAPROXEN [Concomitant]
     Dosage: 500 MG, 2X/DAY (ONE PILL)
  8. ATENOLOL [Concomitant]
     Dosage: 50 MG, 1 TABLET EVERY OTHER DAY
     Route: 048
  9. ALPRAZOLAM [Concomitant]
     Dosage: 0.5 MG, AS NEEDED (AT BEDTIME)
  10. ACYCLOVIR [Concomitant]
     Dosage: 800 MG, 1 TAB 5 TIMES A DAY PRN
     Route: 048
  11. ACETAMINOPHEN W/HYDROCODONE BITARTRATE [Concomitant]
     Dosage: 5/325 MG, 1-2 PILLS 3 TIMES A DAY

REACTIONS (1)
  - Pancreatitis [Recovered/Resolved]
